FAERS Safety Report 8519941 (Version 2)
Quarter: 2012Q4

REPORT INFORMATION
  Report Type: 
  Country: US (occurrence: US)
  Receive Date: 20120418
  Receipt Date: 20121120
  Transmission Date: 20130627
  Serious: No
  Sender: FDA-Public Use
  Company Number: US-ASTRAZENECA-2012SE15276

PATIENT
  Sex: Male

DRUGS (1)
  1. NEXIUM [Suspect]
     Route: 048
     Dates: start: 2006

REACTIONS (3)
  - Dysphagia [Unknown]
  - Oesophageal food impaction [Unknown]
  - Pharyngeal hypoaesthesia [Unknown]
